FAERS Safety Report 5083728-2 (Version None)
Quarter: 2006Q3

REPORT INFORMATION
  Report Type: 
  Country: None (occurrence: None)
  Receive Date: 20060818
  Receipt Date: 20060731
  Transmission Date: 20061208
  Serious: Yes (Other)
  Sender: FDA-Public Use
  Company Number: US-ROCHE-457886

PATIENT
  Age: 57 Year
  Sex: Female
  Weight: 77.1 kg

DRUGS (2)
  1. BONIVA [Suspect]
     Indication: OSTEOPOROSIS
     Route: 048
     Dates: start: 20060713, end: 20060729
  2. ZOLOFT [Concomitant]
     Indication: SOMNOLENCE
     Route: 048

REACTIONS (1)
  - CALCULUS URETERIC [None]
